FAERS Safety Report 9451010 (Version 3)
Quarter: 2013Q3

REPORT INFORMATION
  Report Type: Spontaneous
  Country: GB (occurrence: None)
  Receive Date: 20130807
  Receipt Date: 20130911
  Transmission Date: 20140515
  Serious: Yes (Life-Threatening, Hospitalization, Disabling, Other)
  Sender: FDA-Public Use
  Company Number: AUR-APL-2013-06374

PATIENT
  Age: 57 Year
  Sex: Male
  Weight: 87 kg

DRUGS (2)
  1. PRAMIPEXOLE [Suspect]
     Indication: RESTLESS LEGS SYNDROME
     Route: 048
     Dates: start: 20120103, end: 20130619
  2. PRAMIPEXOLE [Suspect]
     Route: 048
     Dates: start: 20120103, end: 20130619

REACTIONS (7)
  - Drug-induced liver injury [None]
  - Cholelithiasis [None]
  - Cholecystitis [None]
  - Hepatic failure [None]
  - Chronic hepatitis [None]
  - No reaction on previous exposure to drug [None]
  - Hepatitis E virus test positive [None]
